FAERS Safety Report 7450516-9 (Version None)
Quarter: 2011Q2

REPORT INFORMATION
  Report Type: 
  Country: None (occurrence: None)
  Receive Date: 20110502
  Receipt Date: 20110427
  Transmission Date: 20111010
  Serious: Yes (Life-Threatening, Other)
  Sender: FDA-Public Use
  Company Number: PHHY2010CA25771

PATIENT
  Sex: Male

DRUGS (2)
  1. ACLASTA [Suspect]
     Dosage: 5 MG,
     Route: 042
     Dates: start: 20110427
  2. ACLASTA [Suspect]
     Indication: OSTEOPOROSIS
     Dosage: 5 MG,
     Route: 042
     Dates: start: 20100422

REACTIONS (4)
  - ARTHRALGIA [None]
  - FEELING ABNORMAL [None]
  - PAIN [None]
  - MUSCULOSKELETAL STIFFNESS [None]
